FAERS Safety Report 5209490-8 (Version None)
Quarter: 2007Q1

REPORT INFORMATION
  Report Type: 
  Country: None (occurrence: None)
  Receive Date: 20070116
  Receipt Date: 20070105
  Transmission Date: 20070707
  Serious: Yes (Life-Threatening)
  Sender: FDA-Public Use
  Company Number: FR-PFIZER INC-2007002888

PATIENT
  Age: 61 Year
  Sex: Male
  Weight: 78 kg

DRUGS (4)
  1. IRINOTECAN HCL [Suspect]
     Indication: RECTOSIGMOID CANCER
     Route: 042
     Dates: start: 20060828, end: 20061010
  2. FLUOROURACIL [Suspect]
     Indication: RECTOSIGMOID CANCER
     Dosage: TEXT:5.55 G-FREQ:FREQUENCY: 1 CURE
     Route: 042
     Dates: start: 20060828, end: 20061011
  3. LEUCOVORIN CALCIUM [Suspect]
     Indication: RECTOSIGMOID CANCER
     Route: 042
     Dates: start: 20060828, end: 20061010
  4. BEVACIZUMAB [Suspect]
     Indication: RECTOSIGMOID CANCER
     Route: 042
     Dates: start: 20060828, end: 20061010

REACTIONS (1)
  - INTESTINAL PERFORATION [None]
